FAERS Safety Report 7181931-9 (Version None)
Quarter: 2010Q4

REPORT INFORMATION
  Report Type: 
  Country: None (occurrence: None)
  Receive Date: 20101221
  Receipt Date: 20100503
  Transmission Date: 20110411
  Serious: No
  Sender: FDA-Public Use
  Company Number: US-AMGEN-KDL410647

PATIENT

DRUGS (5)
  1. ENBREL [Suspect]
     Indication: ARTHRITIS
     Dosage: UNK UNK, UNK
     Dates: start: 20100101
  2. NABUMETONE [Concomitant]
     Dosage: UNK UNK, QD
  3. SULFASALAZINE [Concomitant]
     Dosage: 500 MG, BID
  4. DONEPEZIL HYDROCHLORIDE [Concomitant]
  5. PREDNISONE [Concomitant]
     Dosage: 5 MG, UNK

REACTIONS (2)
  - DISCOMFORT [None]
  - UNDERDOSE [None]
